FAERS Safety Report 4510962-X (Version None)
Quarter: 2004Q4

REPORT INFORMATION
  Report Type: 
  Country: None (occurrence: None)
  Receive Date: 20040928
  Receipt Date: 20040603
  Transmission Date: 20050328
  Serious: No
  Sender: FDA-Public Use
  Company Number: 04P-163-0263008-00

PATIENT
  Age: 75 Year
  Weight: 63.5036 kg

DRUGS (6)
  1. HUMIRA [Suspect]
     Indication: RHEUMATOID ARTHRITIS
     Dosage: 40 MG, 1 IN 2 WK, SUBCUTANEOUS
     Route: 058
     Dates: start: 20040301, end: 20040521
  2. HUMIRA [Suspect]
     Indication: RHEUMATOID ARTHRITIS
     Dosage: 40 MG, 1 IN 2 WK, SUBCUTANEOUS
     Route: 058
     Dates: start: 20040521
  3. BENAZEPRIL HCL [Concomitant]
  4. PREDNISONE [Concomitant]
  5. ACETYLSALICYLIC ACID [Concomitant]
  6. PROPACET 100 [Concomitant]

REACTIONS (1)
  - DRUG INEFFECTIVE [None]
